FAERS Safety Report 6500519-3 (Version None)
Quarter: 2009Q4

REPORT INFORMATION
  Report Type: 
  Country: None (occurrence: None)
  Receive Date: 20091216
  Receipt Date: 20091211
  Transmission Date: 20100525
  Serious: Yes (Life-Threatening)
  Sender: FDA-Public Use
  Company Number: PHHY2009DE55166

PATIENT
  Sex: Female

DRUGS (1)
  1. GLEEVEC [Suspect]
     Dosage: 800 MG DAILY
     Route: 048
     Dates: start: 20051028, end: 20091128

REACTIONS (3)
  - BLINDNESS [None]
  - EYE HAEMORRHAGE [None]
  - INTRACRANIAL ANEURYSM [None]
